FAERS Safety Report 21402771 (Version 24)
Quarter: 2023Q1

REPORT INFORMATION
  Report Type: Report from Study
  Country: US (occurrence: US)
  Receive Date: 20221003
  Receipt Date: 20230228
  Transmission Date: 20230418
  Serious: Yes (Hospitalization, Other)
  Sender: FDA-Public Use
  Company Number: US-JNJFOC-20220801312

PATIENT
  Age: 50 Year
  Sex: Male
  Weight: 116.8 kg

DRUGS (10)
  1. EPOPROSTENOL SODIUM [Suspect]
     Active Substance: EPOPROSTENOL SODIUM
     Indication: Pulmonary hypertension
     Dosage: VELETRI DOSE 6 NG/KG/MIN
     Route: 042
     Dates: start: 20220818
  2. EPOPROSTENOL SODIUM [Suspect]
     Active Substance: EPOPROSTENOL SODIUM
     Dosage: PUMP RATE OF 83 ML/24 HOURS VELETRI DOSE 6 NG/KG/MIN
     Route: 042
     Dates: start: 20220826, end: 20220828
  3. EPOPROSTENOL SODIUM [Suspect]
     Active Substance: EPOPROSTENOL SODIUM
     Dosage: PUMP RATE 71 ML/24 HOURS
     Route: 042
     Dates: start: 20220828
  4. EPOPROSTENOL SODIUM [Suspect]
     Active Substance: EPOPROSTENOL SODIUM
     Route: 042
  5. EPOPROSTENOL SODIUM [Suspect]
     Active Substance: EPOPROSTENOL SODIUM
     Route: 042
     Dates: start: 20220917
  6. EPOPROSTENOL SODIUM [Suspect]
     Active Substance: EPOPROSTENOL SODIUM
     Dosage: VELETRI DOSE 7 NG/KG/MIN?VELETRI 1.5MG VIAL INTRAVENOUS CONTINUOUS
     Route: 042
  7. EPOPROSTENOL SODIUM [Suspect]
     Active Substance: EPOPROSTENOL SODIUM
     Route: 042
     Dates: start: 20221002
  8. EPOPROSTENOL SODIUM [Suspect]
     Active Substance: EPOPROSTENOL SODIUM
     Route: 042
     Dates: end: 20230202
  9. EPOPROSTENOL SODIUM [Suspect]
     Active Substance: EPOPROSTENOL SODIUM
     Route: 042
  10. SILDENAFIL CITRATE [Concomitant]
     Active Substance: SILDENAFIL CITRATE

REACTIONS (38)
  - Device related infection [Unknown]
  - Gastrointestinal haemorrhage [Unknown]
  - Rash [Unknown]
  - Hepatic failure [Unknown]
  - Hepatic enzyme increased [Unknown]
  - Liver transplant [Unknown]
  - Emergency care [Unknown]
  - SARS-CoV-2 test positive [Unknown]
  - Hospitalisation [Unknown]
  - Asthenia [Not Recovered/Not Resolved]
  - Fluid retention [Unknown]
  - Haemoglobin decreased [Not Recovered/Not Resolved]
  - Headache [Unknown]
  - Nausea [Not Recovered/Not Resolved]
  - Vomiting [Not Recovered/Not Resolved]
  - Flushing [Not Recovered/Not Resolved]
  - Pain in jaw [Not Recovered/Not Resolved]
  - Ageusia [Unknown]
  - Weight increased [Unknown]
  - Dizziness [Unknown]
  - Fall [Unknown]
  - Epistaxis [Unknown]
  - Malaise [Unknown]
  - Diarrhoea [Unknown]
  - Anaemia [Not Recovered/Not Resolved]
  - Arthralgia [Unknown]
  - Pain [Unknown]
  - Chest pain [Unknown]
  - Catheter site haemorrhage [Unknown]
  - Pain [Unknown]
  - Weight decreased [Unknown]
  - Fatigue [Not Recovered/Not Resolved]
  - Muscular weakness [Unknown]
  - Dyspnoea [Unknown]
  - Muscle spasms [Unknown]
  - Device alarm issue [Unknown]
  - Product administration interrupted [Unknown]
  - Echocardiogram abnormal [Unknown]

NARRATIVE: CASE EVENT DATE: 20220101
